FAERS Safety Report 12355781 (Version 1)
Quarter: 2016Q2

REPORT INFORMATION
  Report Type: Spontaneous
  Country: US (occurrence: US)
  Receive Date: 20160511
  Receipt Date: 20160511
  Transmission Date: 20160815
  Serious: No
  Sender: FDA-Public Use
  Company Number: US-009507513-1604USA015395

PATIENT
  Sex: Male

DRUGS (4)
  1. DUREZOL [Concomitant]
     Active Substance: DIFLUPREDNATE
  2. INTRON A [Suspect]
     Active Substance: INTERFERON ALFA-2B
     Indication: MALIGNANT MELANOMA OF EYELID
     Dosage: INJECT 20 MILLION IU, (2 ML) EVERY MONDAY, WEDNESDAY AND FRIDAY
  3. ILEVRO [Concomitant]
     Active Substance: NEPAFENAC
  4. VIAGRA [Concomitant]
     Active Substance: SILDENAFIL CITRATE

REACTIONS (1)
  - Adverse event [Unknown]
